FAERS Safety Report 22289403 (Version 1)
Quarter: 2023Q2

REPORT INFORMATION
  Report Type: Spontaneous
  Country: US (occurrence: None)
  Receive Date: 20230504
  Receipt Date: 20230504
  Transmission Date: 20230722
  Serious: No
  Sender: FDA-Public Use
  Company Number: None

PATIENT
  Age: 57 Year
  Sex: Male
  Weight: 150.14 kg

DRUGS (26)
  1. WELIREG [Suspect]
     Active Substance: BELZUTIFAN
     Indication: Renal cancer
     Dosage: FREQUENCY : DAILY;?
     Route: 048
     Dates: start: 20230108
  2. AMLODIPINE [Concomitant]
     Active Substance: AMLODIPINE BESYLATE
  3. AMOXICILLIN [Concomitant]
     Active Substance: AMOXICILLIN
  4. ASPIRIN [Concomitant]
     Active Substance: ASPIRIN
  5. ATORVASTATIN [Concomitant]
     Active Substance: ATORVASTATIN
  6. AUGMENTIN [Concomitant]
     Active Substance: AMOXICILLIN\CLAVULANATE POTASSIUM
  7. BACLOFEN [Concomitant]
     Active Substance: BACLOFEN
  8. BUMETANIDE [Concomitant]
     Active Substance: BUMETANIDE
  9. BUPROPION [Concomitant]
     Active Substance: BUPROPION
  10. CYCLOBENZAPRINE [Concomitant]
     Active Substance: CYCLOBENZAPRINE
  11. VITAMINS [Concomitant]
     Active Substance: VITAMINS
  12. DIALYVITE [Concomitant]
     Active Substance: ASCORBIC ACID\BIOTIN\CALCIUM PANTOTHENATE\COBALAMIN\FOLIC ACID\NIACINAMIDE\PYRIDOXINE HYDROCHLORIDE\
  13. DOCUSATE [Concomitant]
     Active Substance: DOCUSATE
  14. DULOXETINE [Concomitant]
     Active Substance: DULOXETINE
  15. EPIPEN [Concomitant]
     Active Substance: EPINEPHRINE
  16. GLUCAGON [Concomitant]
     Active Substance: GLUCAGON
  17. HUMALOG [Concomitant]
     Active Substance: INSULIN LISPRO
  18. LIDOCAINE [Concomitant]
     Active Substance: LIDOCAINE
  19. LORAZEPAM [Concomitant]
     Active Substance: LORAZEPAM
  20. MAGNESIUM [Concomitant]
     Active Substance: MAGNESIUM
  21. MIRALAX [Concomitant]
     Active Substance: POLYETHYLENE GLYCOL 3350
  22. MORPHINE [Concomitant]
     Active Substance: MORPHINE
  23. NYSTATIN [Concomitant]
     Active Substance: NYSTATIN
  24. PREGABALIN [Concomitant]
     Active Substance: PREGABALIN
  25. TRAZODONE [Concomitant]
     Active Substance: TRAZODONE HYDROCHLORIDE
  26. VITAMIN D3 [Concomitant]
     Active Substance: CHOLECALCIFEROL

REACTIONS (2)
  - Fatigue [None]
  - Therapy change [None]
